FAERS Safety Report 8483965-0 (Version None)
Quarter: 2012Q3

REPORT INFORMATION
  Report Type: 
  Country: None (occurrence: None)
  Receive Date: 20120703
  Receipt Date: 20120627
  Transmission Date: 20120928
  Serious: No
  Sender: FDA-Public Use
  Company Number: US-PFIZER INC-2012155265

PATIENT
  Sex: Female
  Weight: 53.5 kg

DRUGS (3)
  1. CENTRUM [Concomitant]
     Dosage: UNK
  2. MENEST [Suspect]
     Dosage: 0.3 MG, 1X/DAY
     Route: 048
  3. MENEST [Suspect]
     Indication: HORMONE REPLACEMENT THERAPY
     Dosage: 0.625 MG, 1X/DAY
     Route: 048

REACTIONS (2)
  - ASTHENIA [None]
  - INAPPROPRIATE SCHEDULE OF DRUG ADMINISTRATION [None]
